FAERS Safety Report 14290517 (Version 1)
Quarter: 2017Q4

REPORT INFORMATION
  Report Type: Spontaneous
  Country: US (occurrence: None)
  Receive Date: 20171215
  Receipt Date: 20171215
  Transmission Date: 20180321
  Serious: No
  Sender: FDA-Public Use
  Company Number: None

PATIENT
  Sex: Female

DRUGS (8)
  1. LEVOTHYROXINE. [Concomitant]
     Active Substance: LEVOTHYROXINE
  2. LETROZOLE. [Concomitant]
     Active Substance: LETROZOLE
  3. LISINOPRIL. [Concomitant]
     Active Substance: LISINOPRIL
  4. IBRANCE [Suspect]
     Active Substance: PALBOCICLIB
     Indication: NEOPLASM MALIGNANT
     Route: 048
     Dates: start: 20171125
  5. CALTRATE [Concomitant]
     Active Substance: CALCIUM CARBONATE
  6. PRAVASTATIN. [Concomitant]
     Active Substance: PRAVASTATIN
  7. AMITRIPTYLINE [Concomitant]
     Active Substance: AMITRIPTYLINE
  8. DULOXETINE. [Concomitant]
     Active Substance: DULOXETINE

REACTIONS (3)
  - Nausea [None]
  - Dizziness [None]
  - White blood cell count decreased [None]
